FAERS Safety Report 8503331-9 (Version None)
Quarter: 2012Q2

REPORT INFORMATION
  Report Type: 
  Country: None (occurrence: None)
  Receive Date: 20120405
  Receipt Date: 20110218
  Transmission Date: 20120825
  Serious: Yes (Other)
  Sender: FDA-Public Use
  Company Number: PHEH2010US03275

PATIENT
  Age: 63 Year
  Sex: Female

DRUGS (1)
  1. RECLAST [Suspect]
     Indication: OSTEOPOROSIS POSTMENOPAUSAL
     Dosage: INFUSION
     Dates: start: 20100319

REACTIONS (6)
  - EYE INFECTION [None]
  - FEELING ABNORMAL [None]
  - INFLUENZA LIKE ILLNESS [None]
  - ARTHRITIS [None]
  - FLUOROSIS [None]
  - PAIN IN EXTREMITY [None]
